FAERS Safety Report 7668156-5 (Version None)
Quarter: 2011Q3

REPORT INFORMATION
  Report Type: 
  Country: None (occurrence: None)
  Receive Date: 20110808
  Receipt Date: 20110801
  Transmission Date: 20111222
  Serious: Yes (Other)
  Sender: FDA-Public Use
  Company Number: FR-PFIZER INC-2011174172

PATIENT
  Age: 56 Year
  Sex: Male

DRUGS (18)
  1. VFEND [Suspect]
     Indication: INFECTION PROPHYLAXIS
     Dosage: 400 MG, 2X/DAY
     Route: 048
     Dates: start: 20110425
  2. CIPROFLOXACIN [Suspect]
     Indication: INFECTION PROPHYLAXIS
     Dosage: 1 DF, 2X/DAY
     Route: 042
     Dates: start: 20110611
  3. IDARAC [Concomitant]
     Dosage: 2 DF, 3X/DAY
     Route: 048
  4. GANCICLOVIR SODIUM [Suspect]
     Indication: INFECTION PROPHYLAXIS
     Dosage: 420 MG, 2X/DAY
     Route: 042
  5. CELLCEPT [Suspect]
     Indication: STEM CELL TRANSPLANT
     Dosage: 1 DF, 4X/DAY
     Route: 048
     Dates: start: 20110501
  6. MYCOSTATIN [Concomitant]
     Dosage: 1 DF, 2X/DAY
     Route: 048
     Dates: start: 20110425
  7. OMEPRAZOLE [Concomitant]
     Dosage: 1 DF, 1X/DAY
     Route: 048
     Dates: start: 20110528
  8. ACUPAN [Suspect]
     Indication: PAIN
     Dosage: 20 MG, AS NEEDED
     Route: 042
  9. VANCOMYCIN [Concomitant]
     Dosage: 1750 MG, 1X/DAY
     Route: 042
     Dates: start: 20110425
  10. INNOHEP [Concomitant]
     Dosage: 1 DF, 1X/DAY
     Route: 058
  11. NEORAL [Suspect]
     Indication: STEM CELL TRANSPLANT
     Dosage: 175 MG, 2X/DAY
     Route: 048
     Dates: start: 20110501
  12. PENTACARINAT ^AVENTIS^ [Concomitant]
     Dosage: 1 DF, 1X/DAY
     Route: 055
  13. TIENAM [Suspect]
     Indication: INFECTION PROPHYLAXIS
     Dosage: 1 DF, 4X/DAY
     Route: 042
     Dates: start: 20110611
  14. AMLODIPINE BESYLATE [Concomitant]
     Dosage: 1 DF, 1X/DAY
     Route: 048
  15. URSOLVAN-200 [Concomitant]
     Dosage: 3 DF, 2X/DAY
     Route: 048
     Dates: start: 20110503
  16. GELOX [Concomitant]
     Dosage: 1 DF, 3X/DAY
     Route: 048
  17. IMOVANE [Concomitant]
     Dosage: 1 DF, 1X/DAY
     Route: 048
  18. KIOVIG [Concomitant]
     Dosage: 20 G, WEEKLY
     Route: 042

REACTIONS (1)
  - PETIT MAL EPILEPSY [None]
